FAERS Safety Report 16722354 (Version 3)
Quarter: 2019Q3

REPORT INFORMATION
  Report Type: Spontaneous
  Country: US (occurrence: US)
  Receive Date: 20190820
  Receipt Date: 20190823
  Transmission Date: 20191005
  Serious: Yes (Other)
  Sender: FDA-Public Use
  Company Number: US-009507513-1908USA006612

PATIENT
  Age: 64 Year
  Sex: Female

DRUGS (2)
  1. ASMANEX [Suspect]
     Active Substance: MOMETASONE FUROATE
     Indication: ASTHMA
     Dosage: UNK
     Dates: start: 2010, end: 201907
  2. ASMANEX HFA [Suspect]
     Active Substance: MOMETASONE FUROATE
     Indication: ASTHMA
     Dosage: EVERY OTHER DAY
     Dates: start: 201907

REACTIONS (5)
  - Eye pain [Not Recovered/Not Resolved]
  - Inappropriate schedule of product administration [Unknown]
  - Ocular discomfort [Not Recovered/Not Resolved]
  - Adverse event [Not Recovered/Not Resolved]
  - Ophthalmic herpes zoster [Unknown]

NARRATIVE: CASE EVENT DATE: 2016
